FAERS Safety Report 11863132 (Version 1)
Quarter: 2015Q4

REPORT INFORMATION
  Report Type: Report from Study
  Country: IN (occurrence: IN)
  Receive Date: 20151223
  Receipt Date: 20151223
  Transmission Date: 20160305
  Serious: Yes (Death, Life-Threatening)
  Sender: FDA-Public Use
  Company Number: PHHY2015IN167590

PATIENT
  Sex: Female
  Weight: 56 kg

DRUGS (1)
  1. NELARABINE [Suspect]
     Active Substance: NELARABINE
     Indication: T-CELL TYPE ACUTE LEUKAEMIA
     Dosage: 1000 MG, QD
     Route: 042
     Dates: start: 20151201

REACTIONS (2)
  - Sepsis [Fatal]
  - Seizure [Fatal]
